FAERS Safety Report 9067002 (Version 1)
Quarter: 2013Q1

REPORT INFORMATION
  Report Type: Report from Study
  Country: US (occurrence: US)
  Receive Date: 20130128
  Receipt Date: 20130128
  Transmission Date: 20140127
  Serious: No
  Sender: FDA-Public Use
  Company Number: US-ABBOTT-12P-163-0909741-00

PATIENT
  Age: 11 Year
  Sex: Male

DRUGS (10)
  1. HUMIRA 40 MG/0.8 ML PEN [Suspect]
     Indication: JUVENILE IDIOPATHIC ARTHRITIS
     Dates: start: 201201
  2. SINGULAIR [Concomitant]
     Indication: ASTHMA
  3. METADATE CD [Concomitant]
     Indication: ATTENTION DEFICIT/HYPERACTIVITY DISORDER
  4. TENEX [Concomitant]
     Indication: ATTENTION DEFICIT/HYPERACTIVITY DISORDER
  5. VITAMIN D [Concomitant]
     Indication: VITAMIN D DEFICIENCY
  6. RISPERDAL [Concomitant]
     Indication: AFFECTIVE DISORDER
  7. CLARITIN [Concomitant]
     Indication: HYPERSENSITIVITY
  8. MELATONIN [Concomitant]
     Indication: INSOMNIA
  9. VENTOLIN [Concomitant]
     Indication: ASTHMA
  10. FLOVENT [Concomitant]
     Indication: ASTHMA

REACTIONS (2)
  - Pain [Not Recovered/Not Resolved]
  - Musculoskeletal stiffness [Unknown]
